FAERS Safety Report 13643559 (Version 2)
Quarter: 2017Q2

REPORT INFORMATION
  Report Type: Spontaneous
  Country: JP (occurrence: JP)
  Receive Date: 20170612
  Receipt Date: 20170619
  Transmission Date: 20170830
  Serious: Yes (Hospitalization)
  Sender: FDA-Public Use
  Company Number: JP-MITSUBISHI TANABE PHARMA CORPORATION-MTPC2017-0006738

PATIENT
  Age: 50 Year
  Sex: Male

DRUGS (2)
  1. RADICUT [Suspect]
     Active Substance: EDARAVONE
     Indication: LACUNAR INFARCTION
     Route: 041
  2. CLOPIDOGREL SULFATE [Suspect]
     Active Substance: CLOPIDOGREL BISULFATE
     Indication: LACUNAR INFARCTION
     Route: 048

REACTIONS (1)
  - Cerebral haemorrhage [Recovering/Resolving]
